FAERS Safety Report 9283611 (Version 1)
Quarter: 2013Q2

REPORT INFORMATION
  Report Type: Spontaneous
  Country: NZ (occurrence: None)
  Receive Date: 20130506
  Receipt Date: 20130506
  Transmission Date: 20140414
  Serious: Yes (Other)
  Sender: FDA-Public Use
  Company Number: IPC201304-000167

PATIENT
  Sex: Female

DRUGS (1)
  1. ATENOLOL [Suspect]
     Indication: HYPERTENSION
     Route: 048
     Dates: start: 20130421, end: 20130423

REACTIONS (3)
  - Anaphylactic reaction [None]
  - Lymphadenopathy [None]
  - Malaise [None]
